FAERS Safety Report 9259381 (Version 1)
Quarter: 2013Q2

REPORT INFORMATION
  Report Type: Spontaneous
  Country: US (occurrence: US)
  Receive Date: 20130428
  Receipt Date: 20130428
  Transmission Date: 20140414
  Serious: No
  Sender: FDA-Public Use
  Company Number: US-BAYER-2013-052928

PATIENT
  Age: 90 Year
  Sex: Female
  Weight: 79.37 kg

DRUGS (4)
  1. ALEVE TABLET [Suspect]
     Indication: ANALGESIC THERAPY
     Dosage: 1 DF, QD
     Route: 048
     Dates: start: 1994
  2. BAYER ASPIRIN REGIMEN ADULT LOW STRENGTH [Concomitant]
     Indication: ISCHAEMIC HEART DISEASE PROPHYLAXIS
     Dosage: 2 DF, QD
     Route: 048
  3. ANTIHYPERTENSIVES [Concomitant]
  4. VITAMINS [Concomitant]

REACTIONS (1)
  - Incorrect drug administration duration [None]
